FAERS Safety Report 9216233 (Version 1)
Quarter: 2013Q2

REPORT INFORMATION
  Report Type: Report from Study
  Country: CA (occurrence: CA)
  Receive Date: 20130408
  Receipt Date: 20130408
  Transmission Date: 20140414
  Serious: Yes (Other)
  Sender: FDA-Public Use
  Company Number: CA-JNJFOC-20130401045

PATIENT
  Age: 71 Year
  Sex: Female
  Weight: 95.3 kg

DRUGS (1)
  1. REMICADE [Suspect]
     Indication: RHEUMATOID ARTHRITIS
     Dosage: 34 INFUSIONS
     Route: 042
     Dates: start: 20080403, end: 20130304

REACTIONS (1)
  - Lymphoma [Unknown]
